FAERS Safety Report 8405754-5 (Version None)
Quarter: 2012Q2

REPORT INFORMATION
  Report Type: 
  Country: None (occurrence: None)
  Receive Date: 20120323
  Receipt Date: 20110926
  Transmission Date: 20120825
  Serious: Yes (Hospitalization, Other)
  Sender: FDA-Public Use
  Company Number: 163-21880-11051092

PATIENT
  Age: 76 Year
  Sex: Female

DRUGS (3)
  1. REVLIMID [Suspect]
     Indication: MULTIPLE MYELOMA
     Dosage: 25 MG, QD X 21 DAYS, PO, 15 MG, QD X 21 DAYS, PO, 10 MG, QD X 21 DAYS, PO
     Route: 048
     Dates: start: 20100907
  2. REVLIMID [Suspect]
     Indication: MULTIPLE MYELOMA
     Dosage: 25 MG, QD X 21 DAYS, PO, 15 MG, QD X 21 DAYS, PO, 10 MG, QD X 21 DAYS, PO
     Route: 048
     Dates: start: 20110816, end: 20110926
  3. REVLIMID [Suspect]
     Indication: MULTIPLE MYELOMA
     Dosage: 25 MG, QD X 21 DAYS, PO, 15 MG, QD X 21 DAYS, PO, 10 MG, QD X 21 DAYS, PO
     Route: 048
     Dates: start: 20110401, end: 20110816

REACTIONS (4)
  - FULL BLOOD COUNT DECREASED [None]
  - STOMATITIS [None]
  - PLATELET COUNT DECREASED [None]
  - WHITE BLOOD CELL COUNT DECREASED [None]
